FAERS Safety Report 8187643-7 (Version None)
Quarter: 2012Q1

REPORT INFORMATION
  Report Type: 
  Country: None (occurrence: None)
  Receive Date: 20120306
  Receipt Date: 20120229
  Transmission Date: 20120608
  Serious: Yes (Death, Hospitalization)
  Sender: FDA-Public Use
  Company Number: DE-ACTELION-A-US2011-45592

PATIENT

DRUGS (1)
  1. VENTAVIS [Suspect]
     Indication: PULMONARY ARTERIAL HYPERTENSION
     Dosage: 5 UG, UNK
     Route: 055
     Dates: start: 20090304, end: 20110611

REACTIONS (2)
  - DEATH [None]
  - DYSPNOEA [None]
